FAERS Safety Report 18440330 (Version 1)
Quarter: 2020Q4

REPORT INFORMATION
  Report Type: Report from Study
  Country: JP (occurrence: JP)
  Receive Date: 20201029
  Receipt Date: 20201029
  Transmission Date: 20210114
  Serious: Yes (Other)
  Sender: FDA-Public Use
  Company Number: JP-RECORDATI RARE DISEASES INC.-JP-R13005-20-00141

PATIENT
  Age: 5 Day
  Sex: Male
  Weight: 2.4 kg

DRUGS (5)
  1. LASIX [Concomitant]
     Active Substance: FUROSEMIDE
     Indication: PRODUCT USED FOR UNKNOWN INDICATION
     Route: 065
     Dates: start: 20190515, end: 20190516
  2. CORRECTIVE HIGHLY-CONCENTRATED NACL [Concomitant]
     Indication: PRODUCT USED FOR UNKNOWN INDICATION
     Route: 065
     Dates: start: 20190515, end: 20190523
  3. NEOPROFEN [Suspect]
     Active Substance: IBUPROFEN LYSINE
     Indication: PATENT DUCTUS ARTERIOSUS
     Route: 042
     Dates: start: 20190513, end: 20190513
  4. NEOPROFEN [Suspect]
     Active Substance: IBUPROFEN LYSINE
     Route: 042
     Dates: start: 20190515, end: 20190515
  5. NEOPROFEN [Suspect]
     Active Substance: IBUPROFEN LYSINE
     Route: 042
     Dates: start: 20190516, end: 20190516

REACTIONS (2)
  - Hyponatraemia [Unknown]
  - Hyperkalaemia [Unknown]

NARRATIVE: CASE EVENT DATE: 20190514
